FAERS Safety Report 11325622 (Version 1)
Quarter: 2015Q3

REPORT INFORMATION
  Report Type: Spontaneous
  Country: US (occurrence: US)
  Receive Date: 20150731
  Receipt Date: 20150731
  Transmission Date: 20151125
  Serious: Yes (Other)
  Sender: FDA-Public Use
  Company Number: US-AMGEN-USASP2015075236

PATIENT
  Age: 80 Year
  Sex: Female

DRUGS (3)
  1. MULTIVITAMIN                       /00097801/ [Concomitant]
     Active Substance: VITAMINS
  2. PROLIA [Suspect]
     Active Substance: DENOSUMAB
     Indication: OSTEOPOROSIS POSTMENOPAUSAL
     Dosage: UNK, Q6MO
     Route: 065
  3. TUMS                               /00193601/ [Concomitant]
     Active Substance: CALCIUM CARBONATE\MAGNESIUM CARBONATE\MAGNESIUM TRISILICATE

REACTIONS (9)
  - Diabetes mellitus [Unknown]
  - Psoriasis [Unknown]
  - Muscle spasms [Unknown]
  - Mitral valve prolapse [Unknown]
  - Oedema [Unknown]
  - Blood calcium decreased [Unknown]
  - Pain in extremity [Unknown]
  - Chest pain [Unknown]
  - Chest discomfort [Unknown]
